FAERS Safety Report 21252795 (Version 3)
Quarter: 2023Q2

REPORT INFORMATION
  Report Type: Report from Study
  Country: EG (occurrence: EG)
  Receive Date: 20220825
  Receipt Date: 20230627
  Transmission Date: 20230721
  Serious: Yes (Other)
  Sender: FDA-Public Use
  Company Number: EG-BAYER-2022A116936

PATIENT
  Sex: Male

DRUGS (7)
  1. EYLEA [Suspect]
     Active Substance: AFLIBERCEPT
     Indication: Macular oedema
     Dosage: STRENGTH: 40MG/ML; SOLUTION FOR INJECTION
     Route: 031
     Dates: start: 20210313
  2. EYLEA [Suspect]
     Active Substance: AFLIBERCEPT
     Indication: Retinal vascular occlusion
  3. GLIPTUS [Concomitant]
     Indication: Diabetes mellitus
     Dosage: 1 DF, QD
  4. OMEGA-3 FATTY ACIDS [Concomitant]
     Active Substance: OMEGA-3 FATTY ACIDS
     Indication: Product used for unknown indication
     Dosage: 1 DF, QD
  5. UNSPECIFIED INGREDIENT [Concomitant]
     Active Substance: UNSPECIFIED INGREDIENT
     Indication: Intraocular pressure increased
  6. ALPHANOVA [Concomitant]
     Indication: Intraocular pressure increased
  7. AMBEZIM G [Concomitant]
     Indication: Product used for unknown indication

REACTIONS (4)
  - Eye haemorrhage [Recovered/Resolved]
  - Eye haemorrhage [Recovering/Resolving]
  - Visual impairment [Recovered/Resolved]
  - Dizziness [Unknown]

NARRATIVE: CASE EVENT DATE: 20220601
